FAERS Safety Report 6160944-X (Version None)
Quarter: 2009Q2

REPORT INFORMATION
  Report Type: 
  Country: None (occurrence: None)
  Receive Date: 20090417
  Receipt Date: 20090417
  Transmission Date: 20091009
  Serious: Yes (Other)
  Sender: FDA-Public Use
  Company Number: None

PATIENT
  Age: 48 Year
  Sex: Female
  Weight: 76 kg

DRUGS (8)
  1. ENOXAPARIN SODIUM [Suspect]
     Indication: THROMBOSIS PROPHYLAXIS
     Dosage: 40 MG DAILY SQ
     Route: 058
     Dates: start: 20090225, end: 20090225
  2. KETOROLAC [Concomitant]
  3. LETROZOLE [Concomitant]
  4. MULTI-VITAMIN [Concomitant]
  5. OMEPRAZOLE [Concomitant]
  6. CLONAZEPAM [Concomitant]
  7. ACETAMINOPHEN AND HYDROCODONE BITARTRATE [Concomitant]
  8. LACTATED RINGER'S [Concomitant]

REACTIONS (5)
  - HYPOAESTHESIA [None]
  - HYPOAESTHESIA FACIAL [None]
  - PAIN [None]
  - PARAESTHESIA [None]
  - PARAESTHESIA ORAL [None]
